FAERS Safety Report 17151974 (Version 2)
Quarter: 2019Q4

REPORT INFORMATION
  Report Type: Spontaneous
  Country: US (occurrence: US)
  Receive Date: 20191213
  Receipt Date: 20191223
  Transmission Date: 20200122
  Serious: Yes (Death, Hospitalization, Other)
  Sender: FDA-Public Use
  Company Number: US-PFIZER INC-2019533515

PATIENT
  Sex: Male
  Weight: 76.1 kg

DRUGS (29)
  1. JAKAFI [Suspect]
     Active Substance: RUXOLITINIB
     Dosage: 20 MG, 2X/DAY
     Route: 048
     Dates: start: 201111, end: 20190911
  2. FLUOROURACIL. [Concomitant]
     Active Substance: FLUOROURACIL
     Dosage: UNK
  3. LEVOFLOXACIN. [Concomitant]
     Active Substance: LEVOFLOXACIN
     Dosage: UNK
  4. PREDNISONE. [Concomitant]
     Active Substance: PREDNISONE
     Dosage: UNK
  5. JAKAFI [Suspect]
     Active Substance: RUXOLITINIB
     Indication: POLYCYTHAEMIA VERA
     Dosage: 20 MG, 2X/DAY, [20 MG TABLETS BID (TWICE A DAY)]
     Route: 048
     Dates: start: 201211
  6. MYRBETRIQ [Concomitant]
     Active Substance: MIRABEGRON
     Dosage: UNK
  7. NORCO [Concomitant]
     Active Substance: ACETAMINOPHEN\HYDROCODONE BITARTRATE
     Dosage: UNK
  8. ALBUTEROL [SALBUTAMOL] [Concomitant]
     Active Substance: ALBUTEROL
     Dosage: UNK
  9. PROAIR HFA [Concomitant]
     Active Substance: ALBUTEROL SULFATE
     Dosage: UNK
  10. SPIRIVA [Concomitant]
     Active Substance: TIOTROPIUM BROMIDE MONOHYDRATE
     Dosage: UNK, DAILY, [ONE PUFF DAILY]
  11. ASPIRIN [ACETYLSALICYLIC ACID] [Concomitant]
     Active Substance: ASPIRIN
     Dosage: UNK
  12. CIALIS [Concomitant]
     Active Substance: TADALAFIL
     Dosage: UNK
  13. LISINOPRIL. [Concomitant]
     Active Substance: LISINOPRIL
     Dosage: UNK
  14. MIRABEGRON [Concomitant]
     Active Substance: MIRABEGRON
     Dosage: UNK
  15. SYMBICORT [Concomitant]
     Active Substance: BUDESONIDE\FORMOTEROL FUMARATE DIHYDRATE
     Indication: EMPHYSEMA
     Dosage: UNK, 2X/DAY, [80/4.52 PUFFS TWICE A DAY]
  16. CLOPIDOGREL [Concomitant]
     Active Substance: CLOPIDOGREL BISULFATE
     Dosage: UNK
  17. EPOGEN [Concomitant]
     Active Substance: ERYTHROPOIETIN
     Indication: CHRONIC KIDNEY DISEASE
     Dosage: 20000 IU, UNK, [EVERY MONDAY, WEDNESDAY, FRIDAY (MWF)]
  18. METHOTREXATE. [Concomitant]
     Active Substance: METHOTREXATE
     Dosage: UNK
     Dates: end: 201911
  19. TAMSULOSIN [Concomitant]
     Active Substance: TAMSULOSIN
     Dosage: 0.8 MG, 1X/DAY, [(ONCE DAILY)]
  20. TESTOSTERONE CYPIONATE. [Concomitant]
     Active Substance: TESTOSTERONE CYPIONATE
     Dosage: UNK
  21. DOXYCYCLINE HYCLATE. [Suspect]
     Active Substance: DOXYCYCLINE HYCLATE
     Dosage: UNK
  22. CYCLOBENZAPRINE. [Concomitant]
     Active Substance: CYCLOBENZAPRINE
     Dosage: UNK
  23. JANUVIA [Concomitant]
     Active Substance: SITAGLIPTIN PHOSPHATE
     Dosage: UNK
  24. OMEPRAZOLE. [Concomitant]
     Active Substance: OMEPRAZOLE
     Dosage: UNK
  25. HYDROXYCHLOROQUINE [Concomitant]
     Active Substance: HYDROXYCHLOROQUINE
     Indication: PSORIATIC ARTHROPATHY
     Dosage: UNK
  26. GABAPENTIN. [Suspect]
     Active Substance: GABAPENTIN
     Indication: RENAL TUBULAR NECROSIS
     Dosage: UNK
  27. ALBUTEROL SULFATE. [Concomitant]
     Active Substance: ALBUTEROL SULFATE
     Dosage: UNK
  28. AVANDIA [Concomitant]
     Active Substance: ROSIGLITAZONE MALEATE
     Dosage: UNK
  29. VITAMIN C [Concomitant]
     Active Substance: ASCORBIC ACID
     Dosage: UNK

REACTIONS (41)
  - Pneumonia [Unknown]
  - Post procedural cellulitis [Unknown]
  - Pleural effusion [Unknown]
  - Decreased appetite [Unknown]
  - Thrombocytopenia [Unknown]
  - Septic shock [Unknown]
  - Chronic kidney disease [Unknown]
  - Hypothyroidism [Unknown]
  - Essential hypertension [Unknown]
  - Marrow hyperplasia [Unknown]
  - Fatigue [Unknown]
  - Renal tubular necrosis [Unknown]
  - Emphysema [Unknown]
  - Pulmonary mass [Unknown]
  - Skin lesion [Unknown]
  - Acute kidney injury [Unknown]
  - Psoriatic arthropathy [Unknown]
  - Acute lung injury [Unknown]
  - Benign prostatic hyperplasia [Unknown]
  - Left ventricular dysfunction [Unknown]
  - Pneumonitis [Unknown]
  - Bursitis [Unknown]
  - Chronic obstructive pulmonary disease [Unknown]
  - Cyst [Unknown]
  - Epistaxis [Recovered/Resolved]
  - Anaemia [Unknown]
  - Acute respiratory failure [Fatal]
  - Pulmonary fibrosis [Unknown]
  - Deep vein thrombosis [Unknown]
  - Essential tremor [Unknown]
  - Renal cyst [Unknown]
  - Headache [Unknown]
  - Aortic stenosis [Unknown]
  - Hyperlipidaemia [Unknown]
  - Urticaria [Unknown]
  - Asthenia [Unknown]
  - Delirium [Unknown]
  - Rheumatoid arthritis [Unknown]
  - Type 2 diabetes mellitus [Unknown]
  - Pulmonary oedema [Unknown]
  - Pain in extremity [Unknown]

NARRATIVE: CASE EVENT DATE: 201909
